FAERS Safety Report 6428054-1 (Version None)
Quarter: 2009Q4

REPORT INFORMATION
  Report Type: 
  Country: None (occurrence: None)
  Receive Date: 20091105
  Receipt Date: 20091029
  Transmission Date: 20100525
  Serious: Yes (Life-Threatening)
  Sender: FDA-Public Use
  Company Number: IT-ROCHE-665525

PATIENT
  Sex: Female

DRUGS (4)
  1. XELODA [Suspect]
     Indication: BREAST CANCER
     Dosage: FREQ: CYCLE
     Route: 048
     Dates: start: 20090903, end: 20091007
  2. COUMADIN [Suspect]
     Indication: ATRIAL FIBRILLATION
     Route: 048
     Dates: start: 20080101, end: 20091007
  3. COAPROVEL [Concomitant]
     Route: 048
  4. TENORMIN [Concomitant]
     Route: 048

REACTIONS (4)
  - ANAEMIA [None]
  - ATRIAL FIBRILLATION [None]
  - HYPOTENSION [None]
  - RETROPERITONEAL HAEMATOMA [None]
